FAERS Safety Report 7781427-7 (Version None)
Quarter: 2011Q3

REPORT INFORMATION
  Report Type: 
  Country: None (occurrence: None)
  Receive Date: 20110927
  Receipt Date: 20110921
  Transmission Date: 20111222
  Serious: Yes (Death, Other)
  Sender: FDA-Public Use
  Company Number: PHHY2011GB84123

PATIENT
  Age: 20 Year
  Sex: Male

DRUGS (6)
  1. AMOXICILLIN [Suspect]
     Dosage: UNK UKN, UNK
  2. TRICYCLIC ANTIDEPRESSANTS [Suspect]
     Dosage: UNK UKN, UNK
  3. FERROUS SULFATE TAB [Suspect]
     Dosage: UNK UKN, UNK
  4. ERYTHROMYCIN [Suspect]
     Dosage: UNK UKN, UNK
  5. LOPERAMIDE HCL [Suspect]
     Dosage: UNK UKN, UNK
  6. ACETAMINOPHEN [Suspect]
     Dosage: UNK

REACTIONS (10)
  - BRAIN HERNIATION [None]
  - AMMONIA INCREASED [None]
  - MULTIPLE DRUG OVERDOSE INTENTIONAL [None]
  - BRAIN OEDEMA [None]
  - DEATH [None]
  - ACUTE HEPATIC FAILURE [None]
  - SUICIDE ATTEMPT [None]
  - LIVER INJURY [None]
  - PUPILLARY DISORDER [None]
  - CHOLESTASIS [None]
